FAERS Safety Report 8967807 (Version 1)
Quarter: 2012Q4

REPORT INFORMATION
  Report Type: Spontaneous
  Country: US (occurrence: None)
  Receive Date: 20121213
  Receipt Date: 20121213
  Transmission Date: 20130627
  Serious: No
  Sender: FDA-Public Use
  Company Number: None

PATIENT
  Age: 58 Year
  Sex: Male
  Weight: 90 kg

DRUGS (2)
  1. RIFAPENTINE [Suspect]
     Route: 048
     Dates: start: 20121104, end: 20121104
  2. ISONIAZID [Suspect]
     Route: 048

REACTIONS (4)
  - Chills [None]
  - Chills [None]
  - Pain [None]
  - Influenza [None]
